FAERS Safety Report 7305026-6 (Version None)
Quarter: 2011Q1

REPORT INFORMATION
  Report Type: 
  Country: None (occurrence: None)
  Receive Date: 20110222
  Receipt Date: 20110211
  Transmission Date: 20110831
  Serious: Yes (Death, Hospitalization)
  Sender: FDA-Public Use
  Company Number: US-CELGENEUS-163-21880-10120717

PATIENT
  Sex: Male

DRUGS (2)
  1. REVLIMID [Suspect]
     Indication: MULTIPLE MYELOMA
     Route: 048
     Dates: start: 20100901, end: 20101101
  2. VASOPRESSER [Concomitant]
     Indication: HYPOTENSION
     Route: 065

REACTIONS (5)
  - NEUTROPENIC SEPSIS [None]
  - PULMONARY OEDEMA [None]
  - RENAL FAILURE [None]
  - HYPOTENSION [None]
  - PNEUMONIA [None]
